FAERS Safety Report 6287668-2 (Version None)
Quarter: 2009Q3

REPORT INFORMATION
  Report Type: 
  Country: None (occurrence: None)
  Receive Date: 20090727
  Receipt Date: 20090727
  Transmission Date: 20100115
  Serious: Yes (Other)
  Sender: FDA-Public Use
  Company Number: None

PATIENT
  Sex: Female
  Weight: 90.7194 kg

DRUGS (1)
  1. LAMICTAL [Suspect]
     Indication: BIPOLAR II DISORDER
     Dosage: 300 MG, ONCE PER DAY
     Dates: start: 20090101, end: 20090401

REACTIONS (5)
  - COGNITIVE DISORDER [None]
  - CONFUSIONAL STATE [None]
  - DISORIENTATION [None]
  - MEMORY IMPAIRMENT [None]
  - PRODUCT SUBSTITUTION ISSUE [None]
